FAERS Safety Report 11086755 (Version 9)
Quarter: 2016Q1

REPORT INFORMATION
  Report Type: Report from Study
  Country: CA (occurrence: CA)
  Receive Date: 20150504
  Receipt Date: 20160201
  Transmission Date: 20160525
  Serious: Yes (Death, Other)
  Sender: FDA-Public Use
  Company Number: CA-ROCHE-1572022

PATIENT
  Age: 73 Year
  Sex: Female

DRUGS (14)
  1. PREDNISONE. [Concomitant]
     Active Substance: PREDNISONE
  2. SERTRALINE [Concomitant]
     Active Substance: SERTRALINE HYDROCHLORIDE
  3. METHYLPREDNISOLONE. [Concomitant]
     Active Substance: METHYLPREDNISOLONE
     Indication: PREMEDICATION
     Route: 042
     Dates: start: 20150630, end: 20150714
  4. MIRTAZAPINE. [Concomitant]
     Active Substance: MIRTAZAPINE
  5. RITUXAN [Suspect]
     Active Substance: RITUXIMAB
     Indication: RHEUMATOID ARTHRITIS
     Dosage: FREQUENCY: DAY 1 AND DAY 15
     Route: 042
     Dates: start: 20140724
  6. DOCUSATE SODIUM. [Concomitant]
     Active Substance: DOCUSATE SODIUM
  7. LEVOTHYROXINE. [Concomitant]
     Active Substance: LEVOTHYROXINE
  8. RABEPRAZOLE [Concomitant]
     Active Substance: RABEPRAZOLE
  9. DOMPERIDONE [Concomitant]
     Active Substance: DOMPERIDONE
  10. HYDROXYCHLOROQUINE [Concomitant]
     Active Substance: HYDROXYCHLOROQUINE
  11. ACETAMINOPHEN. [Concomitant]
     Active Substance: ACETAMINOPHEN
     Indication: PREMEDICATION
     Route: 048
     Dates: start: 20150630, end: 20150714
  12. DIPHENHYDRAMINE HYDROCHLORIDE. [Concomitant]
     Active Substance: DIPHENHYDRAMINE HYDROCHLORIDE
     Indication: PREMEDICATION
     Route: 048
     Dates: start: 20150630, end: 20150714
  13. RITUXAN [Suspect]
     Active Substance: RITUXIMAB
     Dosage: DATE OF LAST DOSE OF RITUXIMAB: 07/AUG/2014
     Route: 042
     Dates: start: 20150630, end: 20150714
  14. FUROSEMIDE. [Concomitant]
     Active Substance: FUROSEMIDE

REACTIONS (7)
  - Oxygen saturation decreased [Unknown]
  - Rheumatoid arthritis [Not Recovered/Not Resolved]
  - Breast cancer [Fatal]
  - Oxygen saturation decreased [Unknown]
  - Recurrent cancer [Unknown]
  - Cataract [Not Recovered/Not Resolved]
  - Blood pressure fluctuation [Unknown]

NARRATIVE: CASE EVENT DATE: 20150630
